FAERS Safety Report 8267247-8 (Version None)
Quarter: 2012Q2

REPORT INFORMATION
  Report Type: 
  Country: None (occurrence: None)
  Receive Date: 20120409
  Receipt Date: 20120404
  Transmission Date: 20120825
  Serious: Yes (Hospitalization, Disabling, Other)
  Sender: FDA-Public Use
  Company Number: US-PFIZER INC-2012056975

PATIENT
  Sex: Male
  Weight: 81.633 kg

DRUGS (5)
  1. CHANTIX [Suspect]
     Indication: SMOKING CESSATION THERAPY
     Dosage: UNK
     Route: 048
  2. CELEXA [Concomitant]
     Indication: DEPRESSION
     Dosage: UNK
  3. TOPROL-XL [Concomitant]
     Dosage: UNK
  4. HYDROCODONE [Concomitant]
     Indication: PAIN
     Dosage: UNK
  5. ACCUPRIL [Concomitant]
     Dosage: UNK

REACTIONS (4)
  - MYOCARDIAL INFARCTION [None]
  - TYPE 1 DIABETES MELLITUS [None]
  - THROMBOSIS [None]
  - DRUG INEFFECTIVE [None]
